FAERS Safety Report 16164932 (Version 4)
Quarter: 2020Q1

REPORT INFORMATION
  Report Type: Report from Study
  Country: CA (occurrence: CA)
  Receive Date: 20190405
  Receipt Date: 20200205
  Transmission Date: 20200409
  Serious: Yes (Other)
  Sender: FDA-Public Use
  Company Number: CA-PFIZER INC-2016218327

PATIENT
  Age: 82 Year
  Sex: Female

DRUGS (7)
  1. TECTA [Suspect]
     Active Substance: PANTOPRAZOLE MAGNESIUM
     Dosage: UNK
  2. RISEDRONATE [Concomitant]
     Active Substance: RISEDRONATE SODIUM
     Indication: OSTEOPOROSIS
     Dosage: UNK
  3. ENTOCORT [Concomitant]
     Active Substance: BUDESONIDE
     Dosage: UNK
  4. ENTYVIO [Suspect]
     Active Substance: VEDOLIZUMAB
     Indication: CROHN^S DISEASE
     Dosage: 300 MILLIGRAM
     Route: 042
     Dates: start: 20160316
  5. ENTYVIO [Suspect]
     Active Substance: VEDOLIZUMAB
     Dosage: 300 MILLIGRAM
     Route: 042
  6. ENTYVIO [Suspect]
     Active Substance: VEDOLIZUMAB
     Dosage: 300 MILLIGRAM
     Route: 042
  7. ENTYVIO [Suspect]
     Active Substance: VEDOLIZUMAB
     Dosage: 300 MILLIGRAM
     Route: 042

REACTIONS (3)
  - Nephrolithiasis [Unknown]
  - Diarrhoea [Recovered/Resolved]
  - Faecal calprotectin increased [Unknown]

NARRATIVE: CASE EVENT DATE: 20160318
